FAERS Safety Report 18454808 (Version 3)
Quarter: 2021Q2

REPORT INFORMATION
  Report Type: Spontaneous
  Country: US (occurrence: US)
  Receive Date: 20201103
  Receipt Date: 20210406
  Transmission Date: 20210717
  Serious: Yes (Other)
  Sender: FDA-Public Use
  Company Number: US-SA-2020SA306093

PATIENT
  Age: 39 Year
  Sex: Female

DRUGS (1)
  1. DUPIXENT [Suspect]
     Active Substance: DUPILUMAB
     Indication: DERMATITIS ATOPIC
     Dosage: 300 MG; EVERY OTHER
     Route: 058
     Dates: start: 20200705

REACTIONS (6)
  - Condition aggravated [Unknown]
  - Condition aggravated [Unknown]
  - Visual impairment [Unknown]
  - Eye inflammation [Unknown]
  - Histoplasmosis [Unknown]
  - Neovascularisation [Unknown]

NARRATIVE: CASE EVENT DATE: 2020
